FAERS Safety Report 19611491 (Version 3)
Quarter: 2021Q3

REPORT INFORMATION
  Report Type: Spontaneous
  Country: US (occurrence: US)
  Receive Date: 20210726
  Receipt Date: 20210820
  Transmission Date: 20211014
  Serious: Yes (Other)
  Sender: FDA-Public Use
  Company Number: US-ORGANON-O2107USA001536

PATIENT
  Age: 27 Year
  Sex: Female
  Weight: 119.73 kg

DRUGS (2)
  1. NEXPLANON [Suspect]
     Active Substance: ETONOGESTREL
     Indication: CONTRACEPTION
     Dosage: 1 IMPLANT EVERY 3 YEAR, LEFT UPPER ARM
     Route: 059
     Dates: start: 20210628, end: 20210715
  2. NEXPLANON [Concomitant]
     Active Substance: ETONOGESTREL
     Indication: CONTRACEPTION
     Dosage: 1 IMPLANT IN LEFT ARM FOR THREE YEARS
     Route: 059
     Dates: start: 20180628, end: 20210628

REACTIONS (6)
  - Impaired healing [Not Recovered/Not Resolved]
  - Muscle twitching [Recovered/Resolved]
  - Device expulsion [Recovered/Resolved]
  - Implant site pain [Recovered/Resolved]
  - Discomfort [Unknown]
  - Complication of device insertion [Recovered/Resolved]

NARRATIVE: CASE EVENT DATE: 20210628
